FAERS Safety Report 18206688 (Version 2)
Quarter: 2020Q3

REPORT INFORMATION
  Report Type: Spontaneous
  Country: US (occurrence: US)
  Receive Date: 20200828
  Receipt Date: 20200901
  Transmission Date: 20201103
  Serious: No
  Sender: FDA-Public Use
  Company Number: US-PFIZER INC-2020329667

PATIENT
  Sex: Male

DRUGS (2)
  1. GENOTROPIN MQ [Suspect]
     Active Substance: SOMATROPIN
     Dosage: 0.4 MG
  2. GENOTROPIN MQ [Suspect]
     Active Substance: SOMATROPIN
     Indication: MUSCLE DISORDER
     Dosage: 0.2 MG

REACTIONS (5)
  - Mobility decreased [Unknown]
  - Drug effective for unapproved indication [Unknown]
  - Device use issue [Unknown]
  - Off label use [Unknown]
  - Product use in unapproved indication [Unknown]
